FAERS Safety Report 20119166 (Version 2)
Quarter: 2021Q4

REPORT INFORMATION
  Report Type: Other
  Country: JP (occurrence: JP)
  Receive Date: 20211126
  Receipt Date: 20211201
  Transmission Date: 20220303
  Serious: Yes (Death, Other)
  Sender: FDA-Public Use
  Company Number: JP-CHUGAI-2021027960

PATIENT
  Age: 76 Year
  Sex: Male

DRUGS (1)
  1. ALECENSA [Suspect]
     Active Substance: ALECTINIB HYDROCHLORIDE
     Indication: Squamous cell carcinoma of lung
     Route: 048

REACTIONS (4)
  - Disease progression [Fatal]
  - Metastases to liver [Unknown]
  - Metastases to central nervous system [Unknown]
  - Drug ineffective [Unknown]
